FAERS Safety Report 20499268 (Version 1)
Quarter: 2022Q1

REPORT INFORMATION
  Report Type: Spontaneous
  Country: FR (occurrence: FR)
  Receive Date: 20220222
  Receipt Date: 20220222
  Transmission Date: 20220423
  Serious: Yes (Other)
  Sender: FDA-Public Use
  Company Number: FR-Merck KGaA-9078760

PATIENT
  Age: 92 Year
  Sex: Female

DRUGS (5)
  1. FUROSEMIDE [Suspect]
     Active Substance: FUROSEMIDE
     Indication: Product used for unknown indication
     Dosage: 1 DOSAGE FORM, ONCE A DAY, MIDAY
     Route: 048
     Dates: start: 20190311
  2. BISOPROLOL FUMARATE [Suspect]
     Active Substance: BISOPROLOL FUMARATE
     Indication: Cardiac failure
     Dosage: 1 DOSAGE FORM, 0.5 DAY, BOX OF 30
     Route: 048
     Dates: start: 20190311
  3. BISOPROLOL FUMARATE [Suspect]
     Active Substance: BISOPROLOL FUMARATE
     Dosage: 2 DOSAGE FORM, ONCE A DAY (1 DOSAGE FORM, (BOX OF 30 (1 DF))
     Route: 048
     Dates: start: 20190311
  4. ELIQUIS [Concomitant]
     Active Substance: APIXABAN
     Indication: Product used for unknown indication
     Dosage: 2 DOSAGE FORM, 0.5 DAY ((1 DF IN MORNING AND 1 DF IN EVENING))
     Route: 065
     Dates: start: 20190311
  5. ELIQUIS [Concomitant]
     Active Substance: APIXABAN
     Dosage: 4 DOSAGE FORM, DAILY, 2 DOSAGE FORM (1 DF IN MORNING AND 1 DF IN EVENING)
     Route: 065
     Dates: start: 20190311

REACTIONS (5)
  - Delirium [Not Recovered/Not Resolved]
  - Nightmare [Not Recovered/Not Resolved]
  - Inappropriate schedule of product administration [Not Recovered/Not Resolved]
  - Hallucination [Not Recovered/Not Resolved]
  - Medication error [Not Recovered/Not Resolved]

NARRATIVE: CASE EVENT DATE: 20190311
